FAERS Safety Report 21322866 (Version 3)
Quarter: 2022Q4

REPORT INFORMATION
  Report Type: Report from Study
  Country: CO (occurrence: CO)
  Receive Date: 20220912
  Receipt Date: 20221027
  Transmission Date: 20230113
  Serious: Yes (Life-Threatening, Hospitalization, Other)
  Sender: FDA-Public Use
  Company Number: CO-ABBVIE-22K-036-4526353-00

PATIENT
  Sex: Female
  Weight: 46 kg

DRUGS (1)
  1. ZEMPLAR [Suspect]
     Active Substance: PARICALCITOL
     Indication: Hyperparathyroidism secondary
     Dosage: BY DIALYSIS, FORM STRENGTH 5 MICROGRAM
     Route: 042
     Dates: start: 20220311, end: 20220826

REACTIONS (10)
  - Seizure [Not Recovered/Not Resolved]
  - Oedema [Recovering/Resolving]
  - Respiratory disorder [Recovering/Resolving]
  - Coma [Recovering/Resolving]
  - Fluid retention [Recovering/Resolving]
  - Hypertension [Not Recovered/Not Resolved]
  - Pulmonary oedema [Recovering/Resolving]
  - Vocal cord disorder [Recovering/Resolving]
  - Weight decreased [Recovering/Resolving]
  - Hypertensive emergency [Recovering/Resolving]

NARRATIVE: CASE EVENT DATE: 20220101
